FAERS Safety Report 13079807 (Version 2)
Quarter: 2017Q1

REPORT INFORMATION
  Report Type: Spontaneous
  Country: US (occurrence: US)
  Receive Date: 20170103
  Receipt Date: 20170103
  Transmission Date: 20170428
  Serious: No
  Sender: FDA-Public Use
  Company Number: US-BAYER-2016-245439

PATIENT
  Age: 23 Year
  Sex: Male

DRUGS (3)
  1. ALEVE [Suspect]
     Active Substance: NAPROXEN SODIUM
     Indication: ANALGESIC THERAPY
     Dosage: UNK (60 MORE TABLETS)
  2. ALEVE [Suspect]
     Active Substance: NAPROXEN SODIUM
     Indication: ANALGESIC THERAPY
     Dosage: UNK (TAKE 1 TABLET BY MOUTH EVERY 8-12 HOURS AS NEEDED)
     Route: 048
  3. ALEVE [Suspect]
     Active Substance: NAPROXEN SODIUM
     Indication: ANALGESIC THERAPY
     Dosage: UNK (INGEST 2 TABLETS)

REACTIONS (3)
  - Abdominal pain [Unknown]
  - Intentional overdose [Unknown]
  - Drug ineffective [None]

NARRATIVE: CASE EVENT DATE: 20161227
